FAERS Safety Report 9621839 (Version 1)
Quarter: 2013Q4

REPORT INFORMATION
  Report Type: Spontaneous
  Country: IN (occurrence: IN)
  Receive Date: 20131015
  Receipt Date: 20131015
  Transmission Date: 20140711
  Serious: Yes (Other)
  Sender: FDA-Public Use
  Company Number: IN-MYLANLABS-2013S1022276

PATIENT
  Age: 62 Year
  Sex: Male

DRUGS (2)
  1. DICLOFENAC [Suspect]
     Indication: TOOTHACHE
     Route: 048
  2. EPINEPHRINE [Suspect]
     Indication: ANAPHYLACTIC REACTION
     Dosage: (1:1000 DILUTION) GIVEN OVER 5 MINS
     Route: 030

REACTIONS (3)
  - Anaphylactic reaction [Recovering/Resolving]
  - Intracardiac thrombus [Recovered/Resolved]
  - Acute myocardial infarction [Recovering/Resolving]
